FAERS Safety Report 19761076 (Version 2)
Quarter: 2021Q3

REPORT INFORMATION
  Report Type: Spontaneous
  Country: JP (occurrence: JP)
  Receive Date: 20210830
  Receipt Date: 20210921
  Transmission Date: 20211014
  Serious: Yes (Other)
  Sender: FDA-Public Use
  Company Number: JP-GLAXOSMITHKLINE-JP2021JPN178789

PATIENT
  Sex: Female

DRUGS (15)
  1. BAYASPIRIN [Concomitant]
     Active Substance: ASPIRIN
     Dosage: UNK
  2. MAGMITT [Concomitant]
     Active Substance: MAGNESIUM OXIDE
     Indication: CONSTIPATION
     Dosage: 990 MG
     Route: 048
  3. ISOSORBIDE DINITRATE. [Concomitant]
     Active Substance: ISOSORBIDE DINITRATE
     Dosage: UNK
  4. VALTREX [Suspect]
     Active Substance: VALACYCLOVIR HYDROCHLORIDE
     Indication: HERPES ZOSTER
     Dosage: 3000 MG PER DAY
     Route: 048
  5. ATORVASTATIN OD TABLETS [Concomitant]
     Dosage: UNK
  6. TSUMURA DAIOKANZOTO [Concomitant]
     Dosage: UNK
  7. LOSARHYD COMBINATION TABLETS [Concomitant]
     Dosage: UNK
  8. PITAVASTATIN CALCIUM [Concomitant]
     Active Substance: PITAVASTATIN CALCIUM
     Indication: LIPIDS ABNORMAL
     Dosage: 2 MG
     Route: 048
  9. KETOPROFEN TAPE [Concomitant]
  10. AMLODIPINE [Concomitant]
     Active Substance: AMLODIPINE BESYLATE
     Indication: HYPERTENSION
     Dosage: 5 MG
     Route: 048
  11. NEXIUM [Concomitant]
     Active Substance: ESOMEPRAZOLE MAGNESIUM
     Indication: GASTRITIS
     Dosage: 20 MG
     Route: 048
  12. VALTREX [Suspect]
     Active Substance: VALACYCLOVIR HYDROCHLORIDE
     Dosage: 1500 MG
     Route: 048
  13. AMLODIPINE BESILATE [Concomitant]
     Active Substance: AMLODIPINE BESYLATE
     Dosage: UNK
  14. CILOSTAZOL OD TABLET [Concomitant]
     Dosage: UNK
  15. SENNOSIDES TABLET [Concomitant]
     Active Substance: SENNOSIDES
     Dosage: UNK

REACTIONS (5)
  - Incorrect product administration duration [Unknown]
  - Depressed level of consciousness [Recovered/Resolved]
  - Renal impairment [Unknown]
  - Prescribed overdose [Unknown]
  - Altered state of consciousness [Not Recovered/Not Resolved]
